FAERS Safety Report 4444979-0 (Version None)
Quarter: 2004Q3

REPORT INFORMATION
  Report Type: 
  Country: None (occurrence: None)
  Receive Date: 20040907
  Receipt Date: 20021211
  Transmission Date: 20050211
  Serious: Yes (Death)
  Sender: FDA-Public Use
  Company Number: 2002AP04313

PATIENT
  Age: 70 Year
  Sex: Male

DRUGS (1)
  1. XYLOCAINE [Suspect]
     Dosage: 500 MG DAILY IVD
     Dates: start: 20021201

REACTIONS (4)
  - CARDIO-RESPIRATORY ARREST [None]
  - CONVULSION [None]
  - MEDICATION ERROR [None]
  - OVERDOSE [None]
